FAERS Safety Report 21237370 (Version 2)
Quarter: 2024Q4

REPORT INFORMATION
  Report Type: Spontaneous
  Country: US (occurrence: US)
  Receive Date: 20220822
  Receipt Date: 20241017
  Transmission Date: 20250114
  Serious: No
  Sender: SANOFI AVENTIS
  Company Number: US-SA-SAC20220812001839

PATIENT
  Age: 68 Year
  Sex: Female

DRUGS (2)
  1. DUPIXENT [Suspect]
     Active Substance: DUPILUMAB
     Indication: Dermatitis atopic
     Dosage: 600 MG, 1X
     Route: 058
     Dates: start: 202204, end: 202204
  2. DUPIXENT [Suspect]
     Active Substance: DUPILUMAB
     Indication: Hidradenitis
     Dosage: 300 MG, QOW
     Route: 058
     Dates: start: 2022

REACTIONS (5)
  - Dyspnoea [Recovered/Resolved]
  - Head discomfort [Unknown]
  - Dizziness [Unknown]
  - Injection site pain [Unknown]
  - Product use in unapproved indication [Unknown]

NARRATIVE: CASE EVENT DATE: 20220401
